FAERS Safety Report 4322680-1 (Version None)
Quarter: 2004Q1

REPORT INFORMATION
  Report Type: 
  Country: None (occurrence: None)
  Receive Date: 20040319
  Receipt Date: 20040307
  Transmission Date: 20041129
  Serious: Yes (Hospitalization)
  Sender: FDA-Public Use
  Company Number: BE-JNJFOC-20040301585

PATIENT
  Age: 65 Year
  Sex: Female

DRUGS (9)
  1. CISAPRIDE (CISAPRIDE) UNSPECIFIED [Suspect]
     Indication: DIABETIC GASTROPARESIS
     Dosage: 10 MG, 2 IN 1 DAY
     Dates: start: 20030501
  2. MIXTARD (INITARD) [Concomitant]
  3. DEPONIT (GLYCERYL TRINITRATE) [Concomitant]
  4. MOXON (MOXONIDINE) [Concomitant]
  5. PREDNISONE [Concomitant]
  6. OMEPRAZOLE [Concomitant]
  7. AMLODIPINE BESYLATE [Concomitant]
  8. CA-SANDOZ (CALCIUM GLUBIONATE) [Concomitant]
  9. FOSAMAX [Concomitant]

REACTIONS (4)
  - ANGINA PECTORIS [None]
  - CONDITION AGGRAVATED [None]
  - ELECTROCARDIOGRAM QT PROLONGED [None]
  - HYPERTENSION [None]
